FAERS Safety Report 5626285-1 (Version None)
Quarter: 2008Q1

REPORT INFORMATION
  Report Type: 
  Country: None (occurrence: None)
  Receive Date: 20080214
  Receipt Date: 20080205
  Transmission Date: 20080703
  Serious: Yes (Other)
  Sender: FDA-Public Use
  Company Number: DE-ELI_LILLY_AND_COMPANY-DE200802001039

PATIENT
  Sex: Female
  Weight: 62 kg

DRUGS (2)
  1. FORTEO [Suspect]
     Indication: OSTEOPOROSIS
     Dosage: 20 UG, UNKNOWN
     Route: 058
  2. ETHRIL [Concomitant]
     Indication: RHEUMATOID ARTHRITIS
     Dosage: 50, WEEKLY (1/W)
     Dates: start: 20071116

REACTIONS (6)
  - DIZZINESS [None]
  - HEADACHE [None]
  - HYPERTENSION [None]
  - RHEUMATOID ARTHRITIS [None]
  - TACHYCARDIA [None]
  - TINNITUS [None]
